FAERS Safety Report 10252816 (Version 1)
Quarter: 2014Q2

REPORT INFORMATION
  Report Type: Spontaneous
  Country: US (occurrence: US)
  Receive Date: 20140623
  Receipt Date: 20140623
  Transmission Date: 20141212
  Serious: No
  Sender: FDA-Public Use
  Company Number: US-PFIZER INC-2014168608

PATIENT
  Age: 75 Year
  Sex: Female

DRUGS (15)
  1. XELJANZ [Suspect]
     Indication: RHEUMATOID ARTHRITIS
     Dosage: 5 MG, 2X/DAY
     Route: 048
     Dates: start: 201405
  2. HERBAL SUPPLEMENT PROTANDIM [Concomitant]
     Dosage: UNK
  3. LISINOPRIL [Concomitant]
     Dosage: UNK
  4. AMLODIPINE [Concomitant]
     Dosage: UNK
  5. CALCIUM [Concomitant]
     Dosage: UNK
  6. VITAMIN D [Concomitant]
     Dosage: UNK
  7. METHOTREXATE [Concomitant]
     Dosage: UNK
  8. FOLIC ACID [Concomitant]
     Dosage: UNK
  9. AMBIEN [Concomitant]
     Dosage: UNK
  10. ASPIRIN [Concomitant]
     Dosage: UNK
  11. LOSARTAN [Concomitant]
     Dosage: UNK
  12. PROZAC [Concomitant]
     Dosage: UNK
  13. PREDNISONE [Concomitant]
     Dosage: UNK
  14. FOSAMAX [Concomitant]
     Dosage: UNK
  15. ATENOLOL [Concomitant]
     Dosage: UNK

REACTIONS (4)
  - Contusion [Unknown]
  - Fatigue [Unknown]
  - Activities of daily living impaired [Unknown]
  - Visual acuity reduced [Unknown]
